FAERS Safety Report 16497672 (Version 1)
Quarter: 2019Q2

REPORT INFORMATION
  Report Type: Report from Study
  Country: AU (occurrence: AU)
  Receive Date: 20190628
  Receipt Date: 20190628
  Transmission Date: 20190711
  Serious: Yes (Hospitalization, Other)
  Sender: FDA-Public Use
  Company Number: AU-JNJFOC-20180535855

PATIENT
  Age: 54 Year
  Sex: Female
  Weight: 83 kg

DRUGS (12)
  1. AMITRIPTYLINE [Concomitant]
     Active Substance: AMITRIPTYLINE
     Indication: OCCIPITAL NEURALGIA
     Route: 048
     Dates: start: 20180301
  2. DULOXETINE. [Concomitant]
     Active Substance: DULOXETINE
     Indication: DEPRESSION
     Route: 048
     Dates: start: 20161016
  3. ESKETAMINE [Suspect]
     Active Substance: ESKETAMINE
     Indication: DEPRESSION
     Dosage: MOST RECENT DOSE ON 17-MAY-2018 AT 12:00, 12:05.  MEDICAL KIT NUMBERS:  209528, 209529, 209530
     Dates: start: 20161011
  4. MELOXICAM. [Concomitant]
     Active Substance: MELOXICAM
     Indication: BACK PAIN
     Route: 048
     Dates: start: 2013
  5. ZOPICLONE [Concomitant]
     Active Substance: ZOPICLONE
     Indication: INSOMNIA RELATED TO ANOTHER MENTAL CONDITION
     Dosage: 15-22.5 MG AS NEEDED
     Route: 048
     Dates: start: 2013
  6. PREGABALIN. [Concomitant]
     Active Substance: PREGABALIN
     Indication: OCCIPITAL NEURALGIA
     Route: 048
     Dates: start: 20161203
  7. OSTELIN VITAMIN D [Concomitant]
     Active Substance: CHOLECALCIFEROL
     Indication: VITAMIN D DEFICIENCY
     Route: 048
     Dates: start: 20170124
  8. CLONIDINE. [Concomitant]
     Active Substance: CLONIDINE
     Indication: HYPERTENSION
     Route: 048
     Dates: start: 20180223
  9. IMPLANON [Concomitant]
     Active Substance: ETONOGESTREL
     Indication: ENDOMETRIOSIS
     Route: 058
     Dates: start: 20161214
  10. ESKETAMINE [Suspect]
     Active Substance: ESKETAMINE
     Indication: MAJOR DEPRESSION
     Dates: start: 20180517
  11. DIAZEPAM. [Concomitant]
     Active Substance: DIAZEPAM
     Indication: OCCIPITAL NEURALGIA
  12. DIAZEPAM. [Concomitant]
     Active Substance: DIAZEPAM
     Indication: BACK PAIN
     Route: 048
     Dates: start: 2013

REACTIONS (1)
  - Breast cancer [Recovered/Resolved]

NARRATIVE: CASE EVENT DATE: 20180518
